FAERS Safety Report 7177227-1 (Version None)
Quarter: 2010Q4

REPORT INFORMATION
  Report Type: 
  Country: None (occurrence: None)
  Receive Date: 20101215
  Receipt Date: 20101215
  Transmission Date: 20110411
  Serious: No
  Sender: FDA-Public Use
  Company Number: None

PATIENT
  Sex: Female
  Weight: 60.5 kg

DRUGS (3)
  1. ERBITUX [Suspect]
     Dosage: 200 MG
     Dates: end: 20101203
  2. TAXOL [Suspect]
     Dates: end: 20101115
  3. CARBOPLATIN [Suspect]
     Dates: end: 20101115

REACTIONS (11)
  - ASTHENIA [None]
  - BLOOD CALCIUM DECREASED [None]
  - BLOOD MAGNESIUM DECREASED [None]
  - DECREASED APPETITE [None]
  - DIARRHOEA [None]
  - HYPERTONIA [None]
  - HYPOPHAGIA [None]
  - INFUSION RELATED REACTION [None]
  - MALAISE [None]
  - PARAESTHESIA [None]
  - PARAESTHESIA ORAL [None]
